FAERS Safety Report 7204454-7 (Version None)
Quarter: 2010Q4

REPORT INFORMATION
  Report Type: 
  Country: None (occurrence: None)
  Receive Date: 20101230
  Receipt Date: 20101222
  Transmission Date: 20110411
  Serious: Yes (Hospitalization, Other)
  Sender: FDA-Public Use
  Company Number: US-ABBOTT-10P-163-0681994-00

PATIENT
  Sex: Male
  Weight: 83.99 kg

DRUGS (3)
  1. HUMIRA [Suspect]
     Indication: PSORIASIS
     Route: 058
     Dates: start: 20100421
  2. HUMIRA [Suspect]
     Route: 058
     Dates: end: 20100908
  3. ADALIMUMAB [Concomitant]
     Indication: PRODUCT USED FOR UNKNOWN INDICATION
     Dates: start: 20100317

REACTIONS (3)
  - ANEURYSM [None]
  - DUODENAL ULCER [None]
  - RENAL FAILURE ACUTE [None]
